FAERS Safety Report 24800321 (Version 1)
Quarter: 2025Q1

REPORT INFORMATION
  Report Type: Spontaneous
  Country: GR (occurrence: GR)
  Receive Date: 20250102
  Receipt Date: 20250102
  Transmission Date: 20250409
  Serious: Yes (Other)
  Sender: SAMSUNG BIOEPIS
  Company Number: GR-SAMSUNG BIOEPIS-SB-2024-39536

PATIENT
  Age: 15 Year

DRUGS (1)
  1. ETANERCEPT [Suspect]
     Active Substance: ETANERCEPT
     Indication: Juvenile idiopathic arthritis

REACTIONS (2)
  - Cardiac failure [Recovering/Resolving]
  - Myocarditis [Recovering/Resolving]
